FAERS Safety Report 6907004-5 (Version None)
Quarter: 2010Q3

REPORT INFORMATION
  Report Type: 
  Country: None (occurrence: None)
  Receive Date: 20100804
  Receipt Date: 20070827
  Transmission Date: 20110219
  Serious: No
  Sender: FDA-Public Use
  Company Number: US-PFIZER INC-2007071241

PATIENT
  Sex: Male
  Weight: 82 kg

DRUGS (2)
  1. NARDIL [Suspect]
     Dates: start: 19870101
  2. VALIUM [Concomitant]

REACTIONS (1)
  - DRUG INEFFECTIVE [None]
